FAERS Safety Report 17657432 (Version 3)
Quarter: 2020Q2

REPORT INFORMATION
  Report Type: Report from Study
  Country: CA (occurrence: CA)
  Receive Date: 20200410
  Receipt Date: 20200518
  Transmission Date: 20200713
  Serious: Yes (Hospitalization)
  Sender: FDA-Public Use
  Company Number: CA-ACTELION-A-NJ2020-203766

PATIENT
  Age: 40 Year
  Sex: Female

DRUGS (9)
  1. LASIX [Concomitant]
     Active Substance: FUROSEMIDE
     Dosage: 20 MG, QD
     Route: 048
     Dates: start: 200812
  2. VOLTAREN [Concomitant]
     Active Substance: DICLOFENAC SODIUM
  3. UPTRAVI [Suspect]
     Active Substance: SELEXIPAG
     Indication: PULMONARY ARTERIAL HYPERTENSION
     Dosage: 400 MCG, BID
     Route: 048
     Dates: start: 20200316
  4. PAXIL [Concomitant]
     Active Substance: PAROXETINE HYDROCHLORIDE
  5. OXYGEN. [Concomitant]
     Active Substance: OXYGEN
     Dosage: 6 L, PER MIN
  6. UPTRAVI [Suspect]
     Active Substance: SELEXIPAG
     Dosage: 200 MCG, BID
     Route: 048
     Dates: start: 20200402
  7. WARFARIN [Concomitant]
     Active Substance: WARFARIN
     Dosage: 6 MG, QD
     Route: 048
     Dates: start: 200901
  8. TRACLEER [Suspect]
     Active Substance: BOSENTAN
     Indication: PULMONARY ARTERIAL HYPERTENSION
     Dosage: 125 MG, BID
     Route: 048
     Dates: start: 200312
  9. ADCIRCA [Concomitant]
     Active Substance: TADALAFIL
     Dosage: 40 MG, QD
     Route: 048
     Dates: start: 201012

REACTIONS (12)
  - Blood magnesium decreased [Recovering/Resolving]
  - Vomiting [Recovered/Resolved]
  - Diarrhoea [Recovered/Resolved]
  - Right ventricular hypertrophy [Unknown]
  - Abdominal discomfort [Not Recovered/Not Resolved]
  - Dyspepsia [Recovering/Resolving]
  - Oxygen saturation decreased [Recovering/Resolving]
  - Malaise [Recovering/Resolving]
  - Headache [Not Recovered/Not Resolved]
  - Dehydration [Recovered/Resolved]
  - Nausea [Recovered/Resolved]
  - Fatigue [Recovering/Resolving]

NARRATIVE: CASE EVENT DATE: 20200328
